FAERS Safety Report 9913562 (Version 1)
Quarter: 2014Q1

REPORT INFORMATION
  Report Type: Spontaneous
  Country: US (occurrence: None)
  Receive Date: 20140214
  Receipt Date: 20140214
  Transmission Date: 20141002
  Serious: Yes (Death)
  Sender: FDA-Public Use
  Company Number: AUR-APL-2014-01206

PATIENT
  Age: 59 Year
  Sex: Female

DRUGS (8)
  1. SERTRALINE (SERTRALINE) [Suspect]
     Indication: PRODUCT USED FOR UNKNOWN INDICATION
  2. GABAPENTIN (GABAPENTIN) [Suspect]
     Indication: PRODUCT USED FOR UNKNOWN INDICATION
  3. LEVETIRACETAM (LEVETIRACETAM) [Suspect]
     Indication: PRODUCT USED FOR UNKNOWN INDICATION
  4. PRAMIPEXOLE (PRAMIPEXOLE) [Suspect]
     Indication: PRODUCT USED FOR UNKNOWN INDICATION
  5. VERAPAMIL (VERAPAMIL) [Suspect]
     Indication: PRODUCT USED FOR UNKNOWN INDICATION
  6. NEBIVOLOL (NEBIVOLOL) (NEBIVOLOL) [Suspect]
     Indication: PRODUCT USED FOR UNKNOWN INDICATION
  7. DANAZOL [Suspect]
     Indication: PRODUCT USED FOR UNKNOWN INDICATION
  8. ALBUTEROL/IPATROPIUM [Suspect]
     Indication: PRODUCT USED FOR UNKNOWN INDICATION

REACTIONS (3)
  - Completed suicide [None]
  - Exposure via ingestion [None]
  - Drug abuse [None]
